FAERS Safety Report 8105585 (Version 6)
Quarter: 2012Q4

REPORT INFORMATION
  Report Type: Report from Study
  Country: JP (occurrence: JP)
  Receive Date: 20110825
  Receipt Date: 20121220
  Transmission Date: 20130627
  Serious: Yes (Hospitalization, Other)
  Sender: FDA-Public Use
  Company Number: JP-ASTELLAS-2011US005221

PATIENT
  Age: 62 Year
  Sex: Female
  Weight: 44 kg

DRUGS (9)
  1. ERLOTINIB TABLET [Suspect]
     Indication: ADENOCARCINOMA PANCREAS
     Dosage: 100 mg, UID/QD
     Route: 048
     Dates: start: 20110719, end: 20110807
  2. GEMCITABINE [Suspect]
     Indication: ADENOCARCINOMA PANCREAS
     Dosage: 1000 mg/m2, Weekly
     Route: 041
     Dates: start: 20110719, end: 20110726
  3. CEPHARANTHINE [Concomitant]
     Indication: PRODUCT USED FOR UNKNOWN INDICATION
     Dosage: 6 mg, UID/QD
     Route: 048
     Dates: start: 20110712, end: 20110808
  4. TOUGHMAC E [Concomitant]
     Indication: PRODUCT USED FOR UNKNOWN INDICATION
     Dosage: UNK
     Route: 065
     Dates: start: 20110719, end: 20110808
  5. BISOPROLOL FUMARATE W/HYDROCHLOROTHIAZIDE [Concomitant]
     Indication: PRODUCT USED FOR UNKNOWN INDICATION
     Dosage: UNK
     Route: 065
  6. PROTECADIN [Concomitant]
     Indication: PRODUCT USED FOR UNKNOWN INDICATION
     Dosage: 20 mg, UID/QD
     Route: 048
     Dates: start: 20110726, end: 20110808
  7. MAGNESIUM OXIDE [Concomitant]
     Indication: PRODUCT USED FOR UNKNOWN INDICATION
     Dosage: 990 mg, UID/QD
     Route: 048
     Dates: start: 20110726, end: 20110808
  8. GASTROINTESTINAL DRUG NOS [Concomitant]
     Indication: HYPERTENSION
     Dosage: 3 DF, UID/QD
     Route: 048
     Dates: start: 20110719, end: 20110808
  9. WYTENS [Concomitant]
     Indication: PRODUCT USED FOR UNKNOWN INDICATION
     Dosage: 4 mg, UID/QD
     Route: 048

REACTIONS (6)
  - Pleural effusion [Recovered/Resolved]
  - Hypoproteinaemia [Recovered/Resolved]
  - Cholangitis [Recovered/Resolved]
  - Interstitial lung disease [Recovered/Resolved]
  - Haemoglobin decreased [Unknown]
  - Disease progression [Unknown]
